FAERS Safety Report 5684194-6 (Version None)
Quarter: 2008Q1

REPORT INFORMATION
  Report Type: 
  Country: None (occurrence: None)
  Receive Date: 20080327
  Receipt Date: 20080327
  Transmission Date: 20080703
  Serious: Yes (Life-Threatening, Hospitalization, Other)
  Sender: FDA-Public Use
  Company Number: None

PATIENT
  Age: 85 Year
  Sex: Female
  Weight: 90.7194 kg

DRUGS (1)
  1. MIRAPEX [Suspect]
     Indication: RESTLESS LEGS SYNDROME
     Dosage: 2 TABLETS .25 DAILY PO
     Route: 048
     Dates: start: 20070101, end: 20080312

REACTIONS (7)
  - BLOOD PRESSURE FLUCTUATION [None]
  - DIZZINESS [None]
  - ECONOMIC PROBLEM [None]
  - FALL [None]
  - LOSS OF CONSCIOUSNESS [None]
  - NAUSEA [None]
  - OBSESSIVE-COMPULSIVE DISORDER [None]
